FAERS Safety Report 6058740-7 (Version None)
Quarter: 2009Q1

REPORT INFORMATION
  Report Type: 
  Country: None (occurrence: None)
  Receive Date: 20090130
  Receipt Date: 20090120
  Transmission Date: 20090719
  Serious: Yes (Death, Hospitalization, Other)
  Sender: FDA-Public Use
  Company Number: US-PFIZER INC-2008043849

PATIENT
  Sex: Female
  Weight: 58.957 kg

DRUGS (12)
  1. UNASYN [Suspect]
     Indication: CHOLECYSTITIS INFECTIVE
     Dosage: DAILY
     Route: 042
     Dates: start: 20070601, end: 20070601
  2. CREON [Suspect]
     Indication: COELIAC DISEASE
     Dosage: 12 DF
     Route: 048
     Dates: start: 20070601, end: 20070601
  3. COUMADIN [Concomitant]
     Dates: end: 20070501
  4. SYNTHROID [Concomitant]
     Dates: end: 20070101
  5. VITAMIN D [Concomitant]
     Dates: end: 20070101
  6. VITAMIN E [Concomitant]
     Dates: end: 20070601
  7. DIOVANE [Concomitant]
     Dates: end: 20070101
  8. PERCOCET [Concomitant]
     Dates: end: 20070101
  9. ALL OTHER THERAPEUTIC PRODUCTS [Concomitant]
     Dates: end: 20070101
  10. ATIVAN [Concomitant]
     Dates: end: 20070101
  11. PROCRIT [Concomitant]
     Dates: end: 20070101
  12. FAT/CARBOHYDRATES/PROTEINS/MINERALS/VITAMINS, [Concomitant]
     Dates: end: 20070101

REACTIONS (12)
  - ADVERSE DRUG REACTION [None]
  - CARDIAC ARREST [None]
  - CARDIAC FAILURE CONGESTIVE [None]
  - FOOD ALLERGY [None]
  - GALLBLADDER DISORDER [None]
  - HYDROCEPHALUS [None]
  - LUNG INFILTRATION [None]
  - MALNUTRITION [None]
  - MYOCARDIAL INFARCTION [None]
  - OEDEMA [None]
  - VENTRICULAR FIBRILLATION [None]
  - WHITE BLOOD CELL COUNT DECREASED [None]
